FAERS Safety Report 17523254 (Version 1)
Quarter: 2020Q1

REPORT INFORMATION
  Report Type: Spontaneous
  Country: GB (occurrence: GB)
  Receive Date: 20200310
  Receipt Date: 20200310
  Transmission Date: 20200409
  Serious: Yes (Other)
  Sender: FDA-Public Use
  Company Number: GB-ASTRAZENECA-2020SE33279

PATIENT
  Age: 77 Year
  Sex: Female

DRUGS (2)
  1. GEFITINIB. [Suspect]
     Active Substance: GEFITINIB
     Indication: NON-SMALL CELL LUNG CANCER METASTATIC
     Dosage: DOSE UNKNOWN
     Route: 048
  2. OSIMERTINIB. [Suspect]
     Active Substance: OSIMERTINIB
     Dosage: DOSE UNKNOWN
     Route: 048
     Dates: start: 201801

REACTIONS (11)
  - Back pain [Unknown]
  - Rash [Unknown]
  - Metastases to lung [Unknown]
  - Diarrhoea [Unknown]
  - Metastases to liver [Unknown]
  - Hip fracture [Unknown]
  - Toxicity to various agents [Unknown]
  - Malaise [Unknown]
  - Pain in extremity [Unknown]
  - Metastases to bone [Unknown]
  - Malignant neoplasm progression [Unknown]

NARRATIVE: CASE EVENT DATE: 201712
